FAERS Safety Report 6329448-5 (Version None)
Quarter: 2009Q3

REPORT INFORMATION
  Report Type: 
  Country: None (occurrence: None)
  Receive Date: 20090826
  Receipt Date: 20090820
  Transmission Date: 20100115
  Serious: Yes (Death, Hospitalization)
  Sender: FDA-Public Use
  Company Number: B0589480A

PATIENT
  Age: 86 Year
  Sex: Female

DRUGS (15)
  1. CEFUROXIME [Suspect]
     Dosage: 2250MG PER DAY
     Route: 042
     Dates: start: 20060124
  2. METRONIDAZOLE [Suspect]
     Dosage: 1500MG PER DAY
     Route: 042
     Dates: start: 20060124
  3. CALCICHEW D3 [Concomitant]
     Route: 048
     Dates: end: 20060212
  4. CETIRIZINE HCL [Concomitant]
     Dosage: 10MG PER DAY
     Route: 048
  5. FLUCONAZOLE [Concomitant]
     Dosage: 50MG PER DAY
     Route: 048
  6. LANSOPRAZOLE [Concomitant]
     Dosage: 30MG PER DAY
     Route: 048
  7. MADOPAR [Concomitant]
     Dosage: 375MG PER DAY
     Route: 048
  8. NYSTATIN [Concomitant]
     Dosage: 4ML PER DAY
     Route: 048
  9. PARACETAMOL [Concomitant]
     Dosage: 4G PER DAY
     Route: 048
  10. SENNA [Concomitant]
     Dosage: 20ML PER DAY
     Route: 048
     Dates: start: 20060123
  11. MAGNESIUM HYDROXIDE TAB [Concomitant]
     Dosage: 20ML PER DAY
     Route: 048
     Dates: start: 20060123
  12. SANDO-K [Concomitant]
     Route: 048
     Dates: start: 20060201
  13. ASPIRIN [Concomitant]
     Dosage: 75MG PER DAY
     Route: 048
     Dates: start: 20060201
  14. CALCIUM [Concomitant]
     Route: 048
     Dates: start: 20060212
  15. VITAMIN D3 [Concomitant]
     Route: 048
     Dates: start: 20060212

REACTIONS (2)
  - CLOSTRIDIAL INFECTION [None]
  - CLOSTRIDIUM DIFFICILE COLITIS [None]
